FAERS Safety Report 9721772 (Version 2)
Quarter: 2014Q1

REPORT INFORMATION
  Report Type: Spontaneous
  Country: US (occurrence: US)
  Receive Date: 20131201
  Receipt Date: 20140228
  Transmission Date: 20141002
  Serious: No
  Sender: FDA-Public Use
  Company Number: US-ABBVIE-13P-163-1160735-00

PATIENT
  Age: 57 Year
  Sex: Male
  Weight: 111.23 kg

DRUGS (8)
  1. ANDROGEL [Suspect]
     Indication: BLOOD TESTOSTERONE DECREASED
     Dates: start: 201302, end: 201305
  2. ANDROGEL [Suspect]
     Dates: start: 201305, end: 201308
  3. ANDROGEL [Suspect]
     Dates: start: 201308
  4. ASMANEX [Concomitant]
     Indication: ASTHMA
  5. VENTOLIN [Concomitant]
     Indication: ASTHMA
     Route: 055
  6. NEXIUM [Concomitant]
     Indication: GASTROOESOPHAGEAL REFLUX DISEASE
  7. SINGULAIR [Concomitant]
     Indication: SEASONAL ALLERGY
  8. LORATADINE [Concomitant]
     Indication: HYPERSENSITIVITY

REACTIONS (1)
  - Prostatic specific antigen increased [Not Recovered/Not Resolved]
